FAERS Safety Report 7497618-9 (Version None)
Quarter: 2011Q2

REPORT INFORMATION
  Report Type: 
  Country: None (occurrence: None)
  Receive Date: 20110523
  Receipt Date: 20110511
  Transmission Date: 20111010
  Serious: No
  Sender: FDA-Public Use
  Company Number: US-B.I. PHARMACEUTICALS,INC./RIDGEFIELD-2011-BP-12873BP

PATIENT
  Sex: Male

DRUGS (3)
  1. TOPROL-XL [Concomitant]
     Indication: HYPERTENSION
     Route: 048
  2. PROTONIX [Concomitant]
     Indication: GASTRITIS
     Route: 048
  3. PRADAXA [Suspect]
     Indication: ATRIAL FIBRILLATION
     Dosage: 300 MG
     Route: 048
     Dates: start: 20110401

REACTIONS (4)
  - GASTRITIS [None]
  - ANGINA PECTORIS [None]
  - SWOLLEN TONGUE [None]
  - SLEEP APNOEA SYNDROME [None]
